FAERS Safety Report 15526405 (Version 1)
Quarter: 2018Q4

REPORT INFORMATION
  Report Type: Spontaneous
  Country: BR (occurrence: BR)
  Receive Date: 20181018
  Receipt Date: 20181018
  Transmission Date: 20190205
  Serious: Yes (Other)
  Sender: FDA-Public Use
  Company Number: BR-PFIZER INC-2018416149

PATIENT
  Age: 87 Year
  Sex: Female

DRUGS (2)
  1. ADVIL [Suspect]
     Active Substance: IBUPROFEN
     Indication: PAIN
     Dosage: 400 MG, AS NEEDED
     Dates: start: 20180909
  2. BI-PROFENID [Interacting]
     Active Substance: KETOPROFEN
     Indication: BACK PAIN
     Dosage: 150 MG, 2X/DAY
     Dates: start: 20180909

REACTIONS (5)
  - Cardio-respiratory arrest [Unknown]
  - Atrial fibrillation [Unknown]
  - Drug interaction [Unknown]
  - Upper gastrointestinal haemorrhage [Unknown]
  - Gastric ulcer [Unknown]

NARRATIVE: CASE EVENT DATE: 20180913
